FAERS Safety Report 6871360-7 (Version None)
Quarter: 2010Q3

REPORT INFORMATION
  Report Type: 
  Country: None (occurrence: None)
  Receive Date: 20100723
  Receipt Date: 20100712
  Transmission Date: 20110219
  Serious: Yes (Hospitalization, Other)
  Sender: FDA-Public Use
  Company Number: US-PFIZER INC-2009291828

PATIENT
  Sex: Male

DRUGS (14)
  1. CHANTIX [Suspect]
     Indication: SMOKING CESSATION THERAPY
     Dosage: 1 MG, UNK
     Route: 048
     Dates: start: 20071101, end: 20090823
  2. AMLODIPINE [Concomitant]
     Indication: BLOOD PRESSURE
     Dosage: UNK
  3. ACETYLSALICYLIC ACID [Concomitant]
     Indication: CARDIAC DISORDER
     Dosage: UNK
  4. ACETYLSALICYLIC ACID [Concomitant]
     Indication: BLOOD PRESSURE
  5. CARVEDILOL [Concomitant]
     Indication: CARDIAC DISORDER
     Dosage: UNK
  6. CARVEDILOL [Concomitant]
     Indication: BLOOD PRESSURE
  7. FUROSEMIDE [Concomitant]
     Indication: CARDIAC DISORDER
     Dosage: UNK
  8. FUROSEMIDE [Concomitant]
     Indication: BLOOD PRESSURE
  9. GABAPENTIN [Concomitant]
     Indication: CARDIAC DISORDER
     Dosage: UNK
  10. GABAPENTIN [Concomitant]
     Indication: BLOOD PRESSURE
  11. INSULIN DETEMIR [Concomitant]
     Indication: DIABETES MELLITUS
     Dosage: UNK
  12. PLAVIX [Concomitant]
     Indication: CARDIAC DISORDER
     Dosage: UNK
  13. LIPITOR [Concomitant]
     Indication: BLOOD CHOLESTEROL DECREASED
     Dosage: UNK
  14. THEOPHYLLINE [Concomitant]
     Indication: DYSPNOEA
     Dosage: UNK

REACTIONS (8)
  - ABNORMAL BEHAVIOUR [None]
  - AGGRESSION [None]
  - ANXIETY [None]
  - DEPRESSION [None]
  - MOOD SWINGS [None]
  - OVERDOSE [None]
  - PANIC ATTACK [None]
  - SUICIDE ATTEMPT [None]
